FAERS Safety Report 9700735 (Version 3)
Quarter: 2013Q4

REPORT INFORMATION
  Report Type: Spontaneous
  Country: GB (occurrence: None)
  Receive Date: 20131119
  Receipt Date: 20131211
  Transmission Date: 20140711
  Serious: Yes (Hospitalization)
  Sender: FDA-Public Use
  Company Number: AUR-APL-2013-09584

PATIENT
  Age: 78 Year
  Sex: Male

DRUGS (6)
  1. METFORMIN (METFORMIN) [Suspect]
     Indication: TYPE 2 DIABETES MELLITUS
  2. GLICLAZIDE [Suspect]
     Indication: TYPE 2 DIABETES MELLITUS
  3. PARACETAMOL (PARACETAMOL) [Concomitant]
  4. AMLODIPINE (AMLODIPINE) [Concomitant]
  5. DOXAZOSIN (DOXAZOSIN) [Concomitant]
  6. ALLOPURINOL (ALLOPURINOL) [Concomitant]

REACTIONS (1)
  - Hypoglycaemia [None]
